FAERS Safety Report 12573656 (Version 2)
Quarter: 2016Q3

REPORT INFORMATION
  Report Type: Report from Study
  Country: US (occurrence: US)
  Receive Date: 20160720
  Receipt Date: 20160822
  Transmission Date: 20161109
  Serious: Yes (Hospitalization, Other)
  Sender: FDA-Public Use
  Company Number: PHEH2016US017657

PATIENT
  Age: 77 Year
  Sex: Female
  Weight: 77.4 kg

DRUGS (13)
  1. LISINOPRIL. [Concomitant]
     Active Substance: LISINOPRIL
     Indication: PRODUCT USED FOR UNKNOWN INDICATION
     Dosage: 1 DF, QD
     Route: 065
  2. IRON [Concomitant]
     Active Substance: IRON
     Indication: PRODUCT USED FOR UNKNOWN INDICATION
     Dosage: 1 DF (325 (65 FE) MG), QD
     Route: 065
  3. PROAIR HFA [Concomitant]
     Active Substance: ALBUTEROL SULFATE
     Indication: PRODUCT USED FOR UNKNOWN INDICATION
     Dosage: 2 DF (108 (90 BASE) MCG/ACT), Q4H (AS NEEDED)
     Route: 065
  4. IPRATROPIUM/ALBUTEROL [Concomitant]
     Active Substance: ALBUTEROL\IPRATROPIUM
     Indication: PRODUCT USED FOR UNKNOWN INDICATION
     Dosage: 3 ML (0.5-2.5), QID
     Route: 065
  5. PRILOSEC [Concomitant]
     Active Substance: OMEPRAZOLE MAGNESIUM
     Indication: PRODUCT USED FOR UNKNOWN INDICATION
     Dosage: 1 DF, QD (DELAYED RELEASE CAPSULE)
     Route: 065
  6. TOBI PODHALER [Suspect]
     Active Substance: TOBRAMYCIN
     Indication: PSEUDOMONAS INFECTION
     Dosage: 300 MG, BID
     Route: 055
     Dates: start: 20160604, end: 20160725
  7. SYMBICORT [Concomitant]
     Active Substance: BUDESONIDE\FORMOTEROL FUMARATE DIHYDRATE
     Indication: PRODUCT USED FOR UNKNOWN INDICATION
     Dosage: 2 DF  (BUDESONIDE 160 MCG, FORMOTEROL FUMARATE 4.5 MCG)/ACT, BID (PUFFS)
     Route: 065
  8. XOPENEX [Concomitant]
     Active Substance: LEVALBUTEROL HYDROCHLORIDE
     Indication: PRODUCT USED FOR UNKNOWN INDICATION
     Dosage: 0.63 MG/3 ML, Q8H (NEBULIZATION)
     Route: 065
  9. ACETYLCYSTEINE. [Concomitant]
     Active Substance: ACETYLCYSTEINE
     Indication: PSEUDOMONAS INFECTION
     Dosage: 1 DRP 20 % SOLUTION 1 DROP IN 3 ML, BID
     Route: 065
  10. CLINDAMYCIN HYDROCHLORIDE. [Concomitant]
     Active Substance: CLINDAMYCIN HYDROCHLORIDE
     Indication: PRODUCT USED FOR UNKNOWN INDICATION
     Dosage: 1 DF, Q8H
     Route: 065
  11. TOBRAMYCIN. [Suspect]
     Active Substance: TOBRAMYCIN
     Indication: PRODUCT USED FOR UNKNOWN INDICATION
     Dosage: 300 MG/5 ML, BID (NEBULIZATION)
     Route: 065
     Dates: end: 20160714
  12. VITAMIN C [Concomitant]
     Active Substance: ASCORBIC ACID
     Indication: PRODUCT USED FOR UNKNOWN INDICATION
     Dosage: 1 DF, QD
     Route: 065
  13. CARISOPRODOL ASPIRIN AND CODEIN [Concomitant]
     Indication: PRODUCT USED FOR UNKNOWN INDICATION
     Dosage: (ACETYLSALICYLIC ACID 325 MG, CARISOPRODOL 200 MG, CODEINE PHOSPHATE 16 MG)
     Route: 065

REACTIONS (18)
  - Wheezing [Unknown]
  - Mitral valve disease [Unknown]
  - Hypoxia [Unknown]
  - Weight decreased [Unknown]
  - Lung disorder [Unknown]
  - Dyspnoea [Recovered/Resolved]
  - Ill-defined disorder [Unknown]
  - Breath sounds abnormal [Unknown]
  - Atrial tachycardia [Unknown]
  - Fibrosis [Unknown]
  - Pseudomonas infection [Unknown]
  - Chronic respiratory failure [Unknown]
  - Asthenia [Not Recovered/Not Resolved]
  - Obstructive airways disorder [Unknown]
  - Prolonged expiration [Unknown]
  - Rhonchi [Unknown]
  - Crepitations [Unknown]
  - Aortic valve disease [Unknown]

NARRATIVE: CASE EVENT DATE: 20160701
